FAERS Safety Report 8140901-4 (Version None)
Quarter: 2012Q1

REPORT INFORMATION
  Report Type: 
  Country: None (occurrence: None)
  Receive Date: 20120216
  Receipt Date: 20120207
  Transmission Date: 20120608
  Serious: Yes (Hospitalization)
  Sender: FDA-Public Use
  Company Number: US-JNJFOC-20111007014

PATIENT
  Sex: Female
  Weight: 95.26 kg

DRUGS (30)
  1. VENTOLIN [Concomitant]
     Indication: WHEEZING
     Dosage: INHALE 2 PUFFS BY MOUTH 4 TIMES DAILY IF NEEDED
     Route: 048
  2. TENORMIN [Concomitant]
     Route: 048
  3. VITAMIN D [Concomitant]
     Indication: VITAMIN D DEFICIENCY
     Dosage: 1000 UNIT
     Route: 048
  4. PRINIVIL [Concomitant]
     Route: 048
  5. DESYREL [Concomitant]
     Indication: SLEEP DISORDER
     Route: 048
  6. REMICADE [Suspect]
     Indication: CROHN'S DISEASE
     Route: 042
     Dates: start: 20070101, end: 20110301
  7. PROVENTIL [Concomitant]
     Indication: WHEEZING
     Dosage: INHALE 2 PUFFS BY MOUTH 4 TIMES DAILY IF NEEDED
     Route: 048
  8. PROAIR HFA [Concomitant]
     Indication: WHEEZING
     Dosage: INHALE 2 PUFFS BY MOUTH 4 TIMES DAILY IF NEEDED
     Route: 048
  9. COMPAZINE [Concomitant]
     Indication: VOMITING
     Dosage: 1 TABLET EVERY 4 HOURS IF NEEDED
     Route: 048
  10. IMURAN [Concomitant]
     Indication: CROHN'S DISEASE
     Dosage: 3 TABLETS EVERY MORNING
     Route: 048
  11. ZESTRIL [Concomitant]
     Route: 048
  12. PERCOCET [Concomitant]
     Indication: PAIN
     Dosage: 5-325 MG, 1-2 TABLES EVERY 4 HOURS
     Route: 048
  13. ZOCOR [Concomitant]
     Dosage: 1/2 TABLET A DAY
     Route: 048
  14. ALLEGRA [Concomitant]
     Indication: HYPERSENSITIVITY
     Route: 048
  15. ANTIVERT [Concomitant]
     Dosage: TAKE 1 OR 2 TABLETS BY MOUTH EVERY 6 HOURS AS NEEDED
     Route: 048
  16. POTASSIUM CHLORIDE [Concomitant]
     Dosage: WITH MEAL
     Route: 048
  17. AUGMENTIN '125' [Concomitant]
     Route: 048
  18. ASPIRIN [Concomitant]
     Indication: ARTERIOSCLEROSIS
     Route: 048
  19. FOLIC ACID [Concomitant]
     Indication: CROHN'S DISEASE
     Route: 048
  20. CULTURELLE [Concomitant]
     Indication: DIARRHOEA
     Dosage: 10 BILLIONS CELL
     Route: 048
  21. PRILOSEC [Concomitant]
     Indication: GASTROOESOPHAGEAL REFLUX DISEASE
     Dosage: BEFORE MEAL
     Route: 048
  22. TESSALON [Concomitant]
     Indication: COUGH
     Dosage: 3 TIMES DAILY IF NEEDED
     Route: 048
  23. CELEXA [Concomitant]
     Route: 048
  24. ATIVAN [Concomitant]
     Indication: ANXIETY
     Dosage: 1 TABLET EVERY 6 HOURS IF NEEDED
     Route: 048
  25. FLAGYL [Concomitant]
     Route: 048
  26. NITROSTAT [Concomitant]
     Indication: CHEST PAIN
     Dosage: 1 TABLET EVERY 5 MINUTES UNDER THE TOUNGE
     Route: 060
  27. COMPAZINE [Concomitant]
     Indication: NAUSEA
     Dosage: 1 TABLET EVERY 4 HOURS IF NEEDED
     Route: 048
  28. COUMADIN [Concomitant]
     Indication: DEEP VEIN THROMBOSIS
     Dosage: 1.5 TABLET A DAY
     Route: 048
  29. ALL OTHER THERAPEUTICS [Concomitant]
     Indication: DYSPNOEA
     Route: 065
  30. ALL OTHER THERAPEUTICS [Concomitant]
     Indication: WHEEZING
     Route: 065

REACTIONS (6)
  - STAPHYLOCOCCAL INFECTION [None]
  - CLOSTRIDIUM DIFFICILE COLITIS [None]
  - ABDOMINAL HERNIA [None]
  - PULMONARY EMBOLISM [None]
  - SMALL INTESTINAL OBSTRUCTION [None]
  - WOUND INFECTION [None]
